FAERS Safety Report 15464821 (Version 1)
Quarter: 2018Q4

REPORT INFORMATION
  Report Type: Spontaneous
  Country: US (occurrence: US)
  Receive Date: 20181004
  Receipt Date: 20181004
  Transmission Date: 20190204
  Serious: No
  Sender: FDA-Public Use
  Company Number: US-PFIZER INC-2018396087

PATIENT
  Sex: Male

DRUGS (7)
  1. STEGLATRO [Suspect]
     Active Substance: ERTUGLIFLOZIN PIDOLATE
     Dosage: UNK
  2. ACTOS [Suspect]
     Active Substance: PIOGLITAZONE HYDROCHLORIDE
     Dosage: UNK
  3. MINIPRINE [Suspect]
     Active Substance: MINAPRINE HYDROCHLORIDE
     Dosage: UNK
  4. LIPITOR [Suspect]
     Active Substance: ATORVASTATIN CALCIUM
     Dosage: UNK
  5. ASPIRIN [ACETYLSALICYLIC ACID] [Suspect]
     Active Substance: ASPIRIN
     Dosage: UNK
  6. TRULICITY [Suspect]
     Active Substance: DULAGLUTIDE
     Dosage: UNK
  7. TOUJEO [Suspect]
     Active Substance: INSULIN GLARGINE
     Dosage: 20 IU, UNK (TAKEN ONCE)

REACTIONS (6)
  - Blood glucose increased [Unknown]
  - Dizziness [Unknown]
  - Palpitations [Unknown]
  - Nausea [Unknown]
  - Thirst [Unknown]
  - Arthritis [Unknown]
